FAERS Safety Report 6497728-9 (Version None)
Quarter: 2009Q4

REPORT INFORMATION
  Report Type: 
  Country: None (occurrence: None)
  Receive Date: 20091211
  Receipt Date: 20091201
  Transmission Date: 20100525
  Serious: Yes (Other)
  Sender: FDA-Public Use
  Company Number: 2009EU004107

PATIENT
  Sex: Male

DRUGS (2)
  1. PROGRAF [Suspect]
     Indication: GLOMERULONEPHRITIS
     Dosage: 6 MG,/D, ORAL; 8 MG, /D, ORAL
     Route: 048
  2. RAMIPRIL [Suspect]
     Dosage: 10 MG, /D, ORAL
     Route: 048

REACTIONS (14)
  - BLOOD CHOLESTEROL INCREASED [None]
  - BLOOD POTASSIUM INCREASED [None]
  - BURNING SENSATION [None]
  - DIABETES MELLITUS [None]
  - DIARRHOEA [None]
  - DYSPNOEA [None]
  - FATIGUE [None]
  - HYPOAESTHESIA [None]
  - MICTURITION DISORDER [None]
  - MUSCLE SPASMS [None]
  - MYALGIA [None]
  - OFF LABEL USE [None]
  - TREMOR [None]
  - VISUAL IMPAIRMENT [None]
